FAERS Safety Report 18622166 (Version 1)
Quarter: 2020Q4

REPORT INFORMATION
  Report Type: Spontaneous
  Country: US (occurrence: US)
  Receive Date: 20201214
  Receipt Date: 20201214
  Transmission Date: 20210114
  Serious: No
  Sender: FDA-Public Use
  Company Number: US-ABBVIE-20K-163-3592660-00

PATIENT
  Age: 70 Year

DRUGS (2)
  1. IMBRUVICA [Suspect]
     Active Substance: IBRUTINIB
     Indication: CHRONIC LYMPHOCYTIC LEUKAEMIA
     Route: 048
  2. PURIDE [Concomitant]
     Indication: PRODUCT USED FOR UNKNOWN INDICATION

REACTIONS (5)
  - Disorientation [Unknown]
  - Nightmare [Unknown]
  - Dizziness [Unknown]
  - Poor quality sleep [Unknown]
  - Tension headache [Unknown]

NARRATIVE: CASE EVENT DATE: 202009
